FAERS Safety Report 11127521 (Version 1)
Quarter: 2015Q2

REPORT INFORMATION
  Report Type: Spontaneous
  Country: FR (occurrence: None)
  Receive Date: 20150519
  Receipt Date: 20150519
  Transmission Date: 20150821
  Serious: Yes (Death, Hospitalization)
  Sender: FDA-Public Use
  Company Number: IPC201505-000292

PATIENT
  Age: 31 Year
  Sex: Male

DRUGS (2)
  1. COCAINE (COCAINE) (COCAINE) [Suspect]
     Active Substance: COCAINE
  2. TRAMADOL (TRAMADOL) (TRAMADOL) [Suspect]
     Active Substance: TRAMADOL

REACTIONS (17)
  - Cardio-respiratory arrest [None]
  - Oxygen saturation decreased [None]
  - Electrocardiogram QT interval abnormal [None]
  - Poisoning [None]
  - Drug withdrawal syndrome [None]
  - Hypokalaemia [None]
  - Hypothermia [None]
  - Haemodynamic instability [None]
  - Rhabdomyolysis [None]
  - Blood pressure fluctuation [None]
  - Acute kidney injury [None]
  - Serotonin syndrome [None]
  - Overdose [None]
  - Acidosis [None]
  - Adrenergic syndrome [None]
  - Generalised tonic-clonic seizure [None]
  - Ventricular extrasystoles [None]
